FAERS Safety Report 7827912-0 (Version None)
Quarter: 2011Q4

REPORT INFORMATION
  Report Type: 
  Country: None (occurrence: None)
  Receive Date: 20111020
  Receipt Date: 20110930
  Transmission Date: 20120403
  Serious: No
  Sender: FDA-Public Use
  Company Number: US-BAYER-2011-070173

PATIENT
  Age: 54 Year
  Sex: Male

DRUGS (8)
  1. LISINOPRIL [Concomitant]
  2. PROMETHAZINE [Concomitant]
     Dosage: UNK
  3. NEXAVAR [Suspect]
     Dosage: 200 MG, QD
     Route: 048
     Dates: start: 20110607
  4. LORAZEPAM [Concomitant]
     Dosage: UNK
  5. TRAZODONE HYDROCHLORIDE [Concomitant]
  6. SORBITOL [SORBITOL] [Concomitant]
  7. CLONIDINE [Concomitant]
  8. LANTUS [Concomitant]

REACTIONS (10)
  - BLISTER [None]
  - VOMITING [None]
  - NAUSEA [None]
  - ALOPECIA [None]
  - PLICATED TONGUE [None]
  - DIARRHOEA [None]
  - HEADACHE [None]
  - ABDOMINAL PAIN [None]
  - FATIGUE [None]
  - DYSPNOEA [None]
